FAERS Safety Report 8001059-5 (Version None)
Quarter: 2011Q4

REPORT INFORMATION
  Report Type: 
  Country: None (occurrence: None)
  Receive Date: 20111222
  Receipt Date: 20111007
  Transmission Date: 20120403
  Serious: No
  Sender: FDA-Public Use
  Company Number: US-GLAXOSMITHKLINE-A0948663A

PATIENT
  Age: 4 Year
  Sex: Male

DRUGS (2)
  1. FLOVENT [Suspect]
     Indication: PRODUCT USED FOR UNKNOWN INDICATION
     Route: 055
  2. FEXOFENADINE HYDROCHLORIDE [Suspect]
     Indication: MULTIPLE ALLERGIES
     Dosage: 1TSP PER DAY
     Route: 048
     Dates: start: 20110920

REACTIONS (1)
  - EPISTAXIS [None]
